FAERS Safety Report 25273275 (Version 1)
Quarter: 2025Q2

REPORT INFORMATION
  Report Type: Spontaneous
  Country: US (occurrence: US)
  Receive Date: 20250506
  Receipt Date: 20250506
  Transmission Date: 20250717
  Serious: Yes (Other)
  Sender: AMNEAL
  Company Number: US-AMNEAL PHARMACEUTICALS-2024-AMRX-02149

PATIENT
  Sex: Female

DRUGS (9)
  1. VIGABATRIN [Suspect]
     Active Substance: VIGABATRIN
     Indication: Product used for unknown indication
     Route: 048
  2. CLONAZEPAM [Concomitant]
     Active Substance: CLONAZEPAM
     Indication: Product used for unknown indication
     Route: 065
  3. MIRALAX [Concomitant]
     Active Substance: POLYETHYLENE GLYCOL 3350
     Indication: Product used for unknown indication
     Route: 065
  4. RUFINAMIDE [Concomitant]
     Active Substance: RUFINAMIDE
     Indication: Product used for unknown indication
     Route: 065
  5. PREDNISOLONE [Concomitant]
     Active Substance: PREDNISOLONE
     Indication: Product used for unknown indication
     Route: 065
  6. CLOBAZAM [Concomitant]
     Active Substance: CLOBAZAM
     Indication: Product used for unknown indication
     Route: 048
  7. EPIDIOLEX [Concomitant]
     Active Substance: CANNABIDIOL
     Indication: Product used for unknown indication
     Route: 048
  8. ATROPINE [Concomitant]
     Active Substance: ATROPINE
     Indication: Product used for unknown indication
     Route: 065
  9. MELATONIN [Concomitant]
     Active Substance: MELATONIN
     Indication: Product used for unknown indication
     Route: 048

REACTIONS (1)
  - Seizure [Not Recovered/Not Resolved]
